FAERS Safety Report 6227406-2 (Version None)
Quarter: 2009Q2

REPORT INFORMATION
  Report Type: 
  Country: None (occurrence: None)
  Receive Date: 20090610
  Receipt Date: 20090610
  Transmission Date: 20091009
  Serious: Yes (Life-Threatening, Other)
  Sender: FDA-Public Use
  Company Number: None

PATIENT
  Sex: Female
  Weight: 95.2554 kg

DRUGS (1)
  1. AMBIEN [Suspect]
     Indication: INSOMNIA
     Dosage: 10MG 1 AT BEDTIME
     Dates: start: 20010505, end: 20090310

REACTIONS (5)
  - AGGRESSION [None]
  - AMNESIA [None]
  - FALL [None]
  - MOOD ALTERED [None]
  - SOMNAMBULISM [None]
